FAERS Safety Report 10764593 (Version 2)
Quarter: 2015Q1

REPORT INFORMATION
  Report Type: Spontaneous
  Country: US (occurrence: US)
  Receive Date: 20150205
  Receipt Date: 20150304
  Transmission Date: 20150721
  Serious: No
  Sender: FDA-Public Use
  Company Number: US-ASTRAZENECA-2015SE07719

PATIENT
  Sex: Female

DRUGS (1)
  1. SYMBICORT [Suspect]
     Active Substance: BUDESONIDE\FORMOTEROL FUMARATE DIHYDRATE
     Dosage: 80 4.5 MCG 2 PUFFS, TWO TIMES A DAY
     Route: 055
     Dates: start: 20141230

REACTIONS (3)
  - Gait disturbance [Unknown]
  - Incorrect dose administered by device [Unknown]
  - Limb discomfort [Unknown]
